FAERS Safety Report 5794830-1 (Version None)
Quarter: 2008Q2

REPORT INFORMATION
  Report Type: 
  Country: None (occurrence: None)
  Receive Date: 20080630
  Receipt Date: 20080626
  Transmission Date: 20081010
  Serious: Yes (Death, Hospitalization)
  Sender: FDA-Public Use
  Company Number: B0525881A

PATIENT
  Age: 60 Year
  Sex: Female

DRUGS (6)
  1. LAPATINIB [Suspect]
     Dosage: 1250MG PER DAY
     Route: 048
     Dates: start: 20071002
  2. CAPECITABINE [Suspect]
     Dosage: 1300MGM2 PER DAY
     Route: 048
     Dates: start: 20071002
  3. ALBUTEROL [Concomitant]
     Indication: DRUG USE FOR UNKNOWN INDICATION
     Dosage: 100MCG PER DAY
     Dates: start: 20071101, end: 20080614
  4. ACETAMINOPHEN [Concomitant]
     Indication: PAIN
     Dosage: 300MG PER DAY
     Route: 048
     Dates: start: 20071121, end: 20080614
  5. OMEPRAZOLE [Concomitant]
     Indication: DRUG USE FOR UNKNOWN INDICATION
     Dosage: 20MG PER DAY
     Route: 048
     Dates: start: 20071101, end: 20080614
  6. METAMIZOL [Concomitant]
     Indication: PAIN
     Dosage: 575MG THREE TIMES PER DAY
     Route: 048
     Dates: start: 20071101, end: 20080614

REACTIONS (4)
  - ABDOMINAL DISTENSION [None]
  - CONSTIPATION [None]
  - GASTROINTESTINAL PAIN [None]
  - INTESTINAL OBSTRUCTION [None]
